FAERS Safety Report 23274259 (Version 2)
Quarter: 2023Q4

REPORT INFORMATION
  Report Type: Spontaneous
  Country: CN (occurrence: CN)
  Receive Date: 20231208
  Receipt Date: 20231219
  Transmission Date: 20240110
  Serious: Yes (Hospitalization, Other)
  Sender: FDA-Public Use
  Company Number: None

PATIENT
  Age: 73 Year
  Sex: Male
  Weight: 47 kg

DRUGS (10)
  1. TACROLIMUS [Interacting]
     Active Substance: TACROLIMUS
     Indication: Prophylaxis against transplant rejection
     Dosage: UNK
     Route: 065
  2. TACROLIMUS [Interacting]
     Active Substance: TACROLIMUS
     Dosage: 2.5 MILLIGRAM, BID (EVERY 12 HOUR)
     Route: 048
  3. TACROLIMUS [Interacting]
     Active Substance: TACROLIMUS
     Dosage: 0.5 MILLIGRAM, OD (ONCE DAILY)
     Route: 065
  4. PREDNISONE [Suspect]
     Active Substance: PREDNISONE
     Indication: Prophylaxis against transplant rejection
     Dosage: 5 MILLIGRAM, QD
     Route: 048
  5. VORICONAZOLE [Interacting]
     Active Substance: VORICONAZOLE
     Indication: Bronchopulmonary aspergillosis
     Dosage: 200 MILLIGRAM, BID (EVERY 12 HOUR), (REDUCED DOSE)
     Route: 048
  6. VORICONAZOLE [Interacting]
     Active Substance: VORICONAZOLE
     Indication: Aspergillus infection
     Dosage: 400 MILLIGRAM, BID (EVERY 12 HOUR)
     Route: 048
  7. VORICONAZOLE [Interacting]
     Active Substance: VORICONAZOLE
     Dosage: 150 MILLIGRAM, BID (EVERY 12 HOUR)
     Route: 065
  8. Adrenalin Hydrazone [Concomitant]
     Indication: Haemostasis
     Dosage: 5 MILLIGRAM, TID (EVERY 8 HOUR)
     Route: 048
     Dates: start: 20220816
  9. GLICLAZIDE [Concomitant]
     Active Substance: GLICLAZIDE
     Indication: Type 2 diabetes mellitus
     Dosage: 80 MILLIGRAM, TID (EVERY 8 HOUR)
     Route: 048
  10. LINAGLIPTIN [Concomitant]
     Active Substance: LINAGLIPTIN
     Indication: Type 2 diabetes mellitus
     Dosage: 5 MILLIGRAM, QD (EVERY 1 DAY)
     Route: 048

REACTIONS (6)
  - Toxicity to various agents [Recovered/Resolved]
  - Aspergillus infection [Unknown]
  - Bronchopulmonary aspergillosis [Unknown]
  - Acute kidney injury [Recovered/Resolved]
  - Drug level increased [Recovered/Resolved]
  - Drug interaction [Unknown]

NARRATIVE: CASE EVENT DATE: 20220101
